FAERS Safety Report 15606179 (Version 2)
Quarter: 2018Q4

REPORT INFORMATION
  Report Type: Spontaneous
  Country: FR (occurrence: FR)
  Receive Date: 20181112
  Receipt Date: 20181206
  Transmission Date: 20190205
  Serious: Yes (Other)
  Sender: FDA-Public Use
  Company Number: FR-ROCHE-2211811

PATIENT
  Age: 71 Year
  Sex: Female
  Weight: 67 kg

DRUGS (5)
  1. ZOLOFT [Concomitant]
     Active Substance: SERTRALINE HYDROCHLORIDE
     Indication: DEPRESSION
     Dosage: 15 DAYS
     Route: 065
  2. RIVOTRIL [Suspect]
     Active Substance: CLONAZEPAM
     Indication: MIGRAINE
     Dosage: 1 DROP PER MONTH BEFORE DISCONTINUATION
     Route: 048
  3. RIVOTRIL [Suspect]
     Active Substance: CLONAZEPAM
     Indication: TENSION HEADACHE
     Dosage: 8 DROPS AS DAILY DOSE
     Route: 048
     Dates: start: 201610, end: 201810
  4. DULOXETINE. [Concomitant]
     Active Substance: DULOXETINE
     Indication: DEPRESSION
     Dosage: 15 DAYS
     Route: 065
  5. TEMESTA (FRANCE) [Concomitant]
     Active Substance: LORAZEPAM
     Indication: ANXIETY
     Dosage: 1-0-1
     Route: 048

REACTIONS (8)
  - Withdrawal syndrome [Not Recovered/Not Resolved]
  - Negative thoughts [Not Recovered/Not Resolved]
  - Tremor [Not Recovered/Not Resolved]
  - Product use in unapproved indication [Unknown]
  - Off label use [Unknown]
  - Anxiety [Recovered/Resolved]
  - Nightmare [Recovered/Resolved]
  - Depression [Not Recovered/Not Resolved]

NARRATIVE: CASE EVENT DATE: 201810
